FAERS Safety Report 16698194 (Version 2)
Quarter: 2019Q3

REPORT INFORMATION
  Report Type: Spontaneous
  Country: US (occurrence: US)
  Receive Date: 20190813
  Receipt Date: 20190909
  Transmission Date: 20191004
  Serious: No
  Sender: FDA-Public Use
  Company Number: US-ASTRAZENECA-2019SF07818

PATIENT
  Age: 887 Month
  Sex: Female
  Weight: 85.3 kg

DRUGS (1)
  1. TUDORZA PRESSAIR [Suspect]
     Active Substance: ACLIDINIUM BROMIDE
     Indication: CHRONIC OBSTRUCTIVE PULMONARY DISEASE
     Route: 055

REACTIONS (7)
  - Gait disturbance [Unknown]
  - Fall [Unknown]
  - Product dose omission [Unknown]
  - Ankle fracture [Unknown]
  - Dyspnoea [Unknown]
  - Asthenia [Unknown]
  - Device malfunction [Unknown]

NARRATIVE: CASE EVENT DATE: 201811
